FAERS Safety Report 19106901 (Version 1)
Quarter: 2021Q2

REPORT INFORMATION
  Report Type: Spontaneous
  Country: DE (occurrence: DE)
  Receive Date: 20210408
  Receipt Date: 20210408
  Transmission Date: 20210717
  Serious: Yes (Hospitalization, Other)
  Sender: FDA-Public Use
  Company Number: DE-PFIZER INC-2021358928

PATIENT
  Age: 65 Year
  Sex: Male

DRUGS (10)
  1. FOLIC ACID. [Concomitant]
     Active Substance: FOLIC ACID
     Dosage: 5 MG, WEEKLY, ON FRIDAYS
  2. METHOTREXATE SODIUM. [Suspect]
     Active Substance: METHOTREXATE SODIUM
     Dosage: 15 MG, WEEKLY, ON THURSDAY
  3. TAFLOTAN [Concomitant]
     Active Substance: TAFLUPROST
     Dosage: UNK, 1X/DAY
     Route: 047
  4. METOPROLOL. [Concomitant]
     Active Substance: METOPROLOL
     Dosage: 23.7 MG, 0?0?0.5?0
  5. ASPIRIN. [Concomitant]
     Active Substance: ASPIRIN
     Dosage: 100 MG, 1X/DAY
  6. TIM?OPHTAL [Concomitant]
     Active Substance: TIMOLOL MALEATE
     Dosage: UNK, 1X/DAY
     Route: 047
  7. CLOPIDOGREL [Concomitant]
     Active Substance: CLOPIDOGREL BISULFATE
     Dosage: 75 MG, 1X/DAY
  8. PREDNISOLON [PREDNISOLONE] [Concomitant]
     Active Substance: PREDNISOLONE
     Dosage: UNK, AS NEEDED
  9. SIMVASTATIN. [Concomitant]
     Active Substance: SIMVASTATIN
     Dosage: 10 MG, 1X/DAY
  10. OLUMIANT [Concomitant]
     Active Substance: BARICITINIB
     Dosage: 4 MG, 1X/DAY

REACTIONS (2)
  - Angina pectoris [Recovered/Resolved]
  - Dyspnoea exertional [Recovered/Resolved]
